FAERS Safety Report 4756737-8 (Version None)
Quarter: 2005Q3

REPORT INFORMATION
  Report Type: 
  Country: None (occurrence: None)
  Receive Date: 20050830
  Receipt Date: 20050818
  Transmission Date: 20060218
  Serious: Yes (Death, Life-Threatening)
  Sender: FDA-Public Use
  Company Number: FR-SANOFI-SYNTHELABO-A02200502222

PATIENT
  Age: 87 Year
  Sex: Male

DRUGS (2)
  1. STILNOX [Suspect]
     Indication: SLEEP DISORDER
     Dosage: UNSPECIFIED DAILY DOSE BUT PROBABLE IMPORTANT INTAKES JUST BEFORE THE PATIENT'S DEATH
     Route: 048
  2. LEXOMIL [Concomitant]
     Indication: ANXIETY
     Dosage: UNSPECIFIED DAILY DOSE INCLUDING THE DAYS BEFORE THE PATIENT'S DEATH
     Route: 048

REACTIONS (2)
  - ILL-DEFINED DISORDER [None]
  - OVERDOSE [None]
